FAERS Safety Report 7991066-0 (Version None)
Quarter: 2011Q4

REPORT INFORMATION
  Report Type: 
  Country: None (occurrence: None)
  Receive Date: 20111219
  Receipt Date: 20111214
  Transmission Date: 20120403
  Serious: Yes (Other)
  Sender: FDA-Public Use
  Company Number: BR-ROCHE-670654

PATIENT
  Sex: Female
  Weight: 65 kg

DRUGS (33)
  1. GALVUS [Concomitant]
     Indication: DIABETES MELLITUS
     Dosage: NAME RPTD AS ^GALVUS MET^
  2. ASPIRIN [Concomitant]
  3. ASPIRIN [Concomitant]
     Dosage: DRUG RPTD AS ASPIRINA PREVENT
  4. BONIVA [Concomitant]
  5. MABTHERA [Suspect]
     Indication: RHEUMATOID ARTHRITIS
     Dosage: DOSE: 100MG/10ML, FORM: INFUSION
     Route: 042
     Dates: start: 20091025, end: 20091109
  6. MABTHERA [Suspect]
     Route: 042
     Dates: start: 20100917, end: 20101001
  7. AMARYL [Concomitant]
  8. ACTEMRA [Suspect]
     Indication: RHEUMATOID ARTHRITIS
     Dates: start: 20091025, end: 20101001
  9. ZETIA [Concomitant]
  10. LYRICA [Concomitant]
  11. ACTEMRA [Suspect]
  12. ATACAND [Concomitant]
     Indication: HYPERTENSION
  13. CORTISONE ACETATE [Concomitant]
  14. NAPRIX [Concomitant]
     Indication: HYPERTENSION
  15. DAFORIN [Concomitant]
  16. DAFORIN [Concomitant]
  17. CRESTOR [Concomitant]
  18. ACTEMRA [Suspect]
  19. INDAPAMIDE [Concomitant]
     Indication: HYPERTENSION
  20. CELEBREX [Concomitant]
  21. PLAVIX [Concomitant]
  22. CRESTOR [Concomitant]
     Indication: BLOOD CHOLESTEROL INCREASED
  23. BONIVA [Concomitant]
  24. CALCORT [Concomitant]
  25. ARTRODAR [Concomitant]
  26. EZETIMIBE [Concomitant]
  27. ARAVA [Concomitant]
     Indication: RHEUMATOID ARTHRITIS
  28. DEFLANIL [Concomitant]
     Indication: RHEUMATOID ARTHRITIS
  29. GALVUS [Concomitant]
  30. NEXIUM [Concomitant]
     Indication: PROPHYLAXIS AGAINST GASTROINTESTINAL ULCER
  31. ACETAMINOPHEN AND TRAMADOL HCL [Concomitant]
     Dosage: DRUG REPORTED:PARATRAM
  32. CALCIUM [Concomitant]
  33. MINOCYCLINE HCL [Concomitant]
     Indication: RHEUMATOID ARTHRITIS
     Dosage: DRUG RPTD: DENACEN

REACTIONS (20)
  - INFLUENZA [None]
  - ASTHENIA [None]
  - BLOOD GLUCOSE INCREASED [None]
  - RHEUMATOID ARTHRITIS [None]
  - DRUG INEFFECTIVE [None]
  - SWELLING [None]
  - SYNOVIAL CYST [None]
  - OSTEOARTHRITIS [None]
  - PAIN IN EXTREMITY [None]
  - THERAPEUTIC RESPONSE DECREASED [None]
  - PAIN [None]
  - HYPERSENSITIVITY [None]
  - TENDON RUPTURE [None]
  - ARTERIOSCLEROSIS CORONARY ARTERY [None]
  - GAIT DISTURBANCE [None]
  - JOINT SWELLING [None]
  - CYST [None]
  - SOMNOLENCE [None]
  - RED BLOOD CELL SEDIMENTATION RATE INCREASED [None]
  - THROAT IRRITATION [None]
